FAERS Safety Report 5161692-5 (Version None)
Quarter: 2006Q4

REPORT INFORMATION
  Report Type: 
  Country: None (occurrence: None)
  Receive Date: 20061130
  Receipt Date: 20060731
  Transmission Date: 20070319
  Serious: No
  Sender: FDA-Public Use
  Company Number: US-BRISTOL-MYERS SQUIBB COMPANY-13460936

PATIENT
  Age: 53 Year
  Sex: Female
  Weight: 81 kg

DRUGS (4)
  1. GLUCOPHAGE XR [Suspect]
     Indication: GLUCOSE TOLERANCE IMPAIRED
     Route: 048
  2. PREVACID [Concomitant]
  3. ZYRTEC [Concomitant]
  4. HORMONES [Concomitant]
     Dates: start: 20010917

REACTIONS (3)
  - ASTHENIA [None]
  - HEPATIC ENZYME INCREASED [None]
  - MYALGIA [None]
